FAERS Safety Report 4465031-4 (Version None)
Quarter: 2004Q3

REPORT INFORMATION
  Report Type: 
  Country: None (occurrence: None)
  Receive Date: 20040928
  Receipt Date: 20040928
  Transmission Date: 20050211
  Serious: Yes (Disabling)
  Sender: FDA-Public Use
  Company Number: None

PATIENT
  Age: 67 Year
  Sex: Male
  Weight: 77.1115 kg

DRUGS (1)
  1. TADALAFIL  20 MG [Suspect]
     Indication: ERECTILE DYSFUNCTION
     Dosage: 20 MG PRN ORAL
     Route: 048
     Dates: start: 20040701, end: 20040807

REACTIONS (4)
  - BLINDNESS TRANSIENT [None]
  - HYPERAEMIA [None]
  - OPTIC NERVE DISORDER [None]
  - PAPILLOEDEMA [None]
